FAERS Safety Report 9219171 (Version 2)
Quarter: 2013Q2

REPORT INFORMATION
  Report Type: Spontaneous
  Country: GB (occurrence: GB)
  Receive Date: 20130409
  Receipt Date: 20130502
  Transmission Date: 20140414
  Serious: Yes (Hospitalization, Other)
  Sender: FDA-Public Use
  Company Number: GB-MYLANLABS-2013S1006928

PATIENT
  Age: 70 Year
  Sex: Male

DRUGS (11)
  1. OLANZAPINE [Suspect]
     Indication: HYPOMANIA
     Route: 048
     Dates: start: 20120810, end: 20121101
  2. MIRTAZAPINE [Suspect]
     Indication: BIPOLAR DISORDER
     Dates: start: 20121231
  3. MIRTAZAPINE [Suspect]
     Indication: BIPOLAR DISORDER
  4. ABILIFY [Suspect]
     Indication: BIPOLAR DISORDER
     Route: 048
     Dates: start: 201004, end: 201104
  5. ABILIFY [Suspect]
     Indication: BIPOLAR DISORDER
     Dates: start: 20121129
  6. BISOPROLOL [Concomitant]
     Indication: PRODUCT USED FOR UNKNOWN INDICATION
  7. FOLIC ACID [Concomitant]
     Indication: PRODUCT USED FOR UNKNOWN INDICATION
  8. LANSOPRAZOLE [Concomitant]
     Indication: PRODUCT USED FOR UNKNOWN INDICATION
  9. LEVOTHYROXINE [Concomitant]
     Indication: PRODUCT USED FOR UNKNOWN INDICATION
  10. RAMIPRIL [Concomitant]
     Indication: PRODUCT USED FOR UNKNOWN INDICATION
  11. WARFARIN [Concomitant]
     Indication: PRODUCT USED FOR UNKNOWN INDICATION
     Dates: start: 201301

REACTIONS (4)
  - Drug ineffective [Unknown]
  - Embolism venous [Unknown]
  - Fatigue [Unknown]
  - Sedation [Unknown]
